FAERS Safety Report 22130168 (Version 4)
Quarter: 2023Q2

REPORT INFORMATION
  Report Type: Report from Study
  Country: US (occurrence: US)
  Receive Date: 20230323
  Receipt Date: 20230518
  Transmission Date: 20230721
  Serious: Yes (Other)
  Sender: FDA-Public Use
  Company Number: US-JAZZ PHARMACEUTICALS-2023-US-006681

PATIENT
  Sex: Female

DRUGS (7)
  1. XYREM [Suspect]
     Active Substance: SODIUM OXYBATE
     Indication: Narcolepsy
     Dosage: UNK
  2. XYREM [Suspect]
     Active Substance: SODIUM OXYBATE
     Indication: Cataplexy
  3. XYREM [Suspect]
     Active Substance: SODIUM OXYBATE
     Indication: Somnolence
  4. SUCRALOSE [Suspect]
     Active Substance: SUCRALOSE
     Indication: Product used for unknown indication
     Dosage: UNK
  5. LEVOTHYROXINE [Concomitant]
     Active Substance: LEVOTHYROXINE
     Indication: Product used for unknown indication
     Dosage: UNK
     Dates: start: 19990801
  6. VITAMIN D NOS [Concomitant]
     Active Substance: VITAMIN D NOS
     Indication: Product used for unknown indication
     Dosage: UNK
     Dates: start: 20140804
  7. TYLENOL ALLERGY-D [Concomitant]
     Indication: Product used for unknown indication
     Dosage: UNK
     Dates: start: 20140804

REACTIONS (7)
  - Autoimmune thyroiditis [Unknown]
  - Gastrooesophageal reflux disease [Recovered/Resolved]
  - Asthma [Unknown]
  - Fatigue [Unknown]
  - Fibromyalgia [Recovered/Resolved]
  - Obesity [Recovered/Resolved]
  - Headache [Unknown]
